FAERS Safety Report 9519415 (Version 1)
Quarter: 2013Q1

REPORT INFORMATION
  Report Type: Spontaneous
  Country: US (occurrence: None)
  Receive Date: 20130305
  Receipt Date: 20130305
  Transmission Date: 20140127
  Serious: Yes (Disabling, Other)
  Sender: FDA-Public Use
  Company Number: 163-21880-12063125

PATIENT
  Age: 67 Year
  Sex: Female

DRUGS (14)
  1. REVLIMID (LENALIDOMIDE) (25 MILLIGRAM, CAPSULES) [Suspect]
     Indication: PLASMA CELL MYELOMA
     Route: 048
     Dates: start: 20101201
  2. ASA (ACETYLSALICYLIC ACID) (UNKNOWN) [Concomitant]
  3. DEXAMETHASONE (DEXAMETHASONE) (UNKNOWN) [Concomitant]
  4. HYDROCODONE/ACETAMINOPHEN (REMEDEINE) (UNKNOWN) [Concomitant]
  5. CYCLOBENZAPRINE (CYCLOBENZAPRINE) (TABLETS) [Concomitant]
  6. MENTHOL (MENTHOL) (UNKNOWN) [Concomitant]
  7. CARVEDILOL (CARVEDIOLOL) (UNKNOWN)? [Concomitant]
  8. DIGOXIN (DIGOXIN) (UNKNOWN) (DIGOXIN) [Concomitant]
  9. MULTIVITAMINS (MULTIVITAMINS) (UNKNOWN) [Concomitant]
  10. CALCIUM (CALCIUM) (UNKNOWN) [Concomitant]
  11. LOSARTAN (LOSARTAN) (UNKNOWN) [Concomitant]
  12. ENOXAPARIN (ENOXAPARIN) (UNKNOWN) [Concomitant]
  13. GABAPENTIN (GABAPENTIN) (TABLETS) [Concomitant]
  14. ZOMETA (ZOLEDRONIC ACID) (UNKNOWN) [Concomitant]

REACTIONS (3)
  - Deep vein thrombosis [None]
  - Lymphoedema [None]
  - Cellulitis [None]
